FAERS Safety Report 5910518-8 (Version None)
Quarter: 2008Q4

REPORT INFORMATION
  Report Type: 
  Country: None (occurrence: None)
  Receive Date: 20081007
  Receipt Date: 20080218
  Transmission Date: 20090506
  Serious: No
  Sender: FDA-Public Use
  Company Number: US-ASTRAZENECA-2008UW03320

PATIENT
  Age: 63 Year
  Sex: Female
  Weight: 79.4 kg

DRUGS (5)
  1. ARIMIDEX [Suspect]
     Indication: BREAST CANCER RECURRENT
     Route: 048
  2. VITAMINS [Concomitant]
  3. GLUCOSAMINE [Concomitant]
  4. LORTAB [Concomitant]
  5. ALEVE [Concomitant]

REACTIONS (4)
  - BURNING SENSATION [None]
  - INSOMNIA [None]
  - MYALGIA [None]
  - RASH [None]
